FAERS Safety Report 23543419 (Version 1)
Quarter: 2024Q1

REPORT INFORMATION
  Report Type: Spontaneous
  Country: AU (occurrence: AU)
  Receive Date: 20240220
  Receipt Date: 20240220
  Transmission Date: 20240410
  Serious: Yes (Other)
  Sender: FDA-Public Use
  Company Number: AU-BIOVITRUM-2024-AU-002398

PATIENT
  Age: 6 Year
  Sex: Male

DRUGS (1)
  1. EMAPALUMAB [Suspect]
     Active Substance: EMAPALUMAB
     Indication: Haemophagocytic lymphohistiocytosis
     Dates: start: 20240120

REACTIONS (3)
  - Fungal infection [Unknown]
  - Stevens-Johnson syndrome [Unknown]
  - Disease progression [Unknown]

NARRATIVE: CASE EVENT DATE: 20240129
